FAERS Safety Report 12621913 (Version 1)
Quarter: 2016Q3

REPORT INFORMATION
  Report Type: Spontaneous
  Country: US (occurrence: US)
  Receive Date: 20160804
  Receipt Date: 20160804
  Transmission Date: 20161109
  Serious: No
  Sender: FDA-Public Use
  Company Number: US-ANTARES PHARMA, INC.-2016-SPO-MX-0208

PATIENT
  Sex: Female

DRUGS (5)
  1. PEPCID                             /00305201/ [Concomitant]
     Active Substance: ALUMINUM HYDROXIDE\MAGNESIUM CARBONATE
  2. OTREXUP [Suspect]
     Active Substance: METHOTREXATE
     Indication: SCLERODERMA
     Dosage: 10 MG/0.4ML, QWK
  3. NOVOCAINE [Concomitant]
     Active Substance: PROCAINE
  4. METOPROLOL. [Concomitant]
     Active Substance: METOPROLOL
  5. LISINOPRIL. [Concomitant]
     Active Substance: LISINOPRIL

REACTIONS (3)
  - Off label use [None]
  - Pain in extremity [None]
  - Musculoskeletal pain [None]
